FAERS Safety Report 11855760 (Version 1)
Quarter: 2015Q4

REPORT INFORMATION
  Report Type: Report from Study
  Country: VE (occurrence: VE)
  Receive Date: 20151221
  Receipt Date: 20151221
  Transmission Date: 20160305
  Serious: Yes (Hospitalization)
  Sender: FDA-Public Use
  Company Number: VE-ABBVIE-14K-178-1316528-00

PATIENT
  Sex: Female
  Weight: 54 kg

DRUGS (8)
  1. MESALAZINE [Concomitant]
     Active Substance: MESALAMINE
     Dates: start: 2005, end: 2014
  2. PREDNISONE. [Concomitant]
     Active Substance: PREDNISONE
     Indication: COLITIS ULCERATIVE
     Route: 048
     Dates: start: 2005, end: 2014
  3. TRIMEBUTINE [Concomitant]
     Active Substance: TRIMEBUTINE
     Indication: COLITIS ULCERATIVE
     Route: 048
  4. AZULFIDINE [Concomitant]
     Active Substance: SULFASALAZINE
     Indication: COLITIS ULCERATIVE
     Route: 048
     Dates: start: 2015
  5. HUMIRA [Suspect]
     Active Substance: ADALIMUMAB
     Indication: COLITIS ULCERATIVE
     Route: 058
     Dates: start: 201405, end: 20141120
  6. MESALAZINE [Concomitant]
     Active Substance: MESALAMINE
     Indication: COLITIS ULCERATIVE
     Route: 048
     Dates: start: 2005, end: 2014
  7. OMEPRAZOLE. [Concomitant]
     Active Substance: OMEPRAZOLE
     Indication: PEPTIC ULCER
     Route: 048
     Dates: start: 2005
  8. MEROPENEM. [Concomitant]
     Active Substance: MEROPENEM
     Indication: RECTAL ABSCESS
     Route: 042
     Dates: start: 201411, end: 201412

REACTIONS (3)
  - Rectal abscess [Recovering/Resolving]
  - Escherichia test positive [Unknown]
  - Laboratory test abnormal [Recovering/Resolving]

NARRATIVE: CASE EVENT DATE: 2014
